FAERS Safety Report 8350815-2 (Version None)
Quarter: 2012Q2

REPORT INFORMATION
  Report Type: 
  Country: None (occurrence: None)
  Receive Date: 20120510
  Receipt Date: 20120502
  Transmission Date: 20120825
  Serious: Yes (Other)
  Sender: FDA-Public Use
  Company Number: BR-ROCHE-1003733

PATIENT
  Sex: Female
  Weight: 72 kg

DRUGS (20)
  1. ACTEMRA [Suspect]
     Route: 042
     Dates: start: 20110301
  2. ACTEMRA [Suspect]
     Route: 042
     Dates: start: 20120416
  3. CORTICORTEN [Concomitant]
  4. ACTEMRA [Suspect]
     Route: 042
     Dates: start: 20120130
  5. ACTEMRA [Suspect]
     Route: 042
     Dates: start: 20110104
  6. ACTEMRA [Suspect]
     Route: 042
     Dates: start: 20110204
  7. ACTEMRA [Suspect]
     Route: 042
     Dates: start: 20110503
  8. ACTEMRA [Suspect]
     Route: 042
     Dates: start: 20110404
  9. ACTEMRA [Suspect]
     Route: 042
     Dates: start: 20110801
  10. ACTEMRA [Suspect]
     Route: 042
     Dates: start: 20111127
  11. METHOTREXATE [Concomitant]
  12. ACTEMRA [Suspect]
     Route: 042
     Dates: start: 20110701
  13. ACTEMRA [Suspect]
     Route: 042
     Dates: start: 20120312
  14. METICORTEN [Concomitant]
  15. ACTEMRA [Suspect]
     Indication: PRODUCT USED FOR UNKNOWN INDICATION
     Route: 042
     Dates: start: 20101201
  16. ACTEMRA [Suspect]
     Route: 042
     Dates: start: 20110601
  17. ACTEMRA [Suspect]
     Route: 042
     Dates: start: 20111027
  18. ACTEMRA [Suspect]
     Route: 042
     Dates: start: 20120201
  19. ACTEMRA [Suspect]
     Route: 042
     Dates: start: 20110901
  20. ACTEMRA [Suspect]
     Route: 042
     Dates: start: 20111230

REACTIONS (3)
  - BLOOD CHOLESTEROL INCREASED [None]
  - JOINT SWELLING [None]
  - CORONARY ARTERY OCCLUSION [None]
